FAERS Safety Report 5779533-1 (Version None)
Quarter: 2008Q2

REPORT INFORMATION
  Report Type: 
  Country: None (occurrence: None)
  Receive Date: 20080619
  Receipt Date: 20080609
  Transmission Date: 20081010
  Serious: Yes (Hospitalization, Other)
  Sender: FDA-Public Use
  Company Number: US-PFIZER INC-2007098122

PATIENT
  Sex: Male
  Weight: 88.9 kg

DRUGS (1)
  1. CELEBREX [Suspect]
     Indication: RHEUMATOID ARTHRITIS
     Dates: start: 20020905, end: 20041213

REACTIONS (2)
  - ARRHYTHMIA [None]
  - DEPRESSION [None]
